FAERS Safety Report 14450179 (Version 1)
Quarter: 2018Q1

REPORT INFORMATION
  Report Type: Spontaneous
  Country: IT (occurrence: IT)
  Receive Date: 20180129
  Receipt Date: 20180129
  Transmission Date: 20180509
  Serious: Yes (Other)
  Sender: FDA-Public Use
  Company Number: IT-UNICHEM PHARMACEUTICALS (USA) INC-UCM201801-000019

PATIENT
  Age: 65 Year
  Sex: Female

DRUGS (1)
  1. DIVALPROEX SODIUM. [Suspect]
     Active Substance: DIVALPROEX SODIUM

REACTIONS (5)
  - Asthenia [Recovering/Resolving]
  - Encephalopathy [Recovering/Resolving]
  - Gaze palsy [Recovering/Resolving]
  - Somnolence [Recovering/Resolving]
  - Gait inability [Recovering/Resolving]
